FAERS Safety Report 8953959 (Version 1)
Quarter: 2012Q4

REPORT INFORMATION
  Report Type: 
  Country: EC (occurrence: EC)
  Receive Date: 20121206
  Receipt Date: 20121206
  Transmission Date: 20130627
  Serious: Yes (Other)
  Sender: FDA-Public Use
  Company Number: PHHY2012EC112176

PATIENT
  Age: 55 Year
  Sex: Female

DRUGS (2)
  1. TEGRETOL CR [Suspect]
     Dosage: 400 mg, UNK
     Route: 048
     Dates: start: 20091010, end: 20121023
  2. TEGRETOL CR [Suspect]
     Dosage: 200 mg, UNK
     Route: 048
     Dates: start: 20121023

REACTIONS (1)
  - Convulsion [Recovering/Resolving]
